FAERS Safety Report 9678448 (Version 3)
Quarter: 2013Q4

REPORT INFORMATION
  Report Type: Spontaneous
  Country: JP (occurrence: JP)
  Receive Date: 20131108
  Receipt Date: 20131227
  Transmission Date: 20140711
  Serious: Yes (Hospitalization)
  Sender: FDA-Public Use
  Company Number: JP-BRISTOL-MYERS SQUIBB COMPANY-19789395

PATIENT
  Age: 80 Year
  Sex: Male
  Weight: 70 kg

DRUGS (9)
  1. ELIQUIS [Suspect]
     Indication: ATRIAL FIBRILLATION
     Route: 048
     Dates: start: 20130913, end: 20131029
  2. SITAGLIPTIN PHOSPHATE [Concomitant]
     Indication: TYPE 2 DIABETES MELLITUS
  3. AMARYL [Concomitant]
     Indication: TYPE 2 DIABETES MELLITUS
  4. ACARBOSE [Concomitant]
     Indication: TYPE 2 DIABETES MELLITUS
  5. DIGOSIN [Concomitant]
  6. ALDACTONE A [Concomitant]
     Indication: PROPHYLAXIS
  7. FLIVAS [Concomitant]
     Indication: NOCTURIA
  8. TAGAMET [Concomitant]
  9. MARZULENE-S [Concomitant]
     Indication: GASTRITIS

REACTIONS (1)
  - Drug-induced liver injury [Recovered/Resolved]
